FAERS Safety Report 4560063-X (Version None)
Quarter: 2005Q1

REPORT INFORMATION
  Report Type: 
  Country: None (occurrence: None)
  Receive Date: 20050124
  Receipt Date: 20050113
  Transmission Date: 20050727
  Serious: Yes (Other)
  Sender: FDA-Public Use
  Company Number: 003936

PATIENT
  Sex: Female

DRUGS (6)
  1. MEDROXYPROGESTERONE ACETATE [Suspect]
  2. PREMPRO [Suspect]
  3. ESTRACE [Suspect]
  4. PREMARIN [Suspect]
  5. PROVERA [Suspect]
  6. ESTROGEN NOS (ESTROGEN NOS) [Suspect]

REACTIONS (1)
  - BREAST CANCER FEMALE [None]
